FAERS Safety Report 25032802 (Version 1)
Quarter: 2025Q1

REPORT INFORMATION
  Report Type: Spontaneous
  Country: CA (occurrence: CA)
  Receive Date: 20250303
  Receipt Date: 20250303
  Transmission Date: 20250409
  Serious: Yes (Other)
  Sender: ALEXION PHARMACEUTICALS
  Company Number: CA-AstraZeneca-2021A138082

PATIENT

DRUGS (3)
  1. SYMBICORT [Suspect]
     Active Substance: BUDESONIDE\FORMOTEROL FUMARATE DIHYDRATE
     Indication: Product used for unknown indication
     Dosage: 2 DOSAGE FORM, BID
  2. ALBUTEROL SULFATE [Suspect]
     Active Substance: ALBUTEROL SULFATE
     Indication: Product used for unknown indication
  3. TIOTROPIUM BROMIDE [Suspect]
     Active Substance: TIOTROPIUM BROMIDE
     Indication: Product used for unknown indication
     Dosage: 2 DOSAGE FORM, BID, 2.5 MCG

REACTIONS (6)
  - Asthma [Unknown]
  - Dyspnoea [Unknown]
  - Sleep disorder due to a general medical condition [Unknown]
  - Decreased activity [Unknown]
  - Wheezing [Unknown]
  - Therapeutic product effect incomplete [Unknown]
